FAERS Safety Report 11577473 (Version 1)
Quarter: 2015Q3

REPORT INFORMATION
  Report Type: Report from Study
  Country: US (occurrence: US)
  Receive Date: 20150930
  Receipt Date: 20150930
  Transmission Date: 20151125
  Serious: Yes (Other)
  Sender: FDA-Public Use
  Company Number: US-JNJFOC-20141012066

PATIENT
  Sex: Male
  Weight: 127.01 kg

DRUGS (2)
  1. METFORMIN [Concomitant]
     Active Substance: METFORMIN HYDROCHLORIDE
     Indication: MALAISE
     Route: 065
  2. INVOKANA [Suspect]
     Active Substance: CANAGLIFLOZIN
     Indication: PRODUCT USED FOR UNKNOWN INDICATION
     Route: 048

REACTIONS (7)
  - Chondropathy [Unknown]
  - Urine output increased [Not Recovered/Not Resolved]
  - Polydipsia [Not Recovered/Not Resolved]
  - Thirst [Not Recovered/Not Resolved]
  - Haematochezia [Not Recovered/Not Resolved]
  - Dry mouth [Not Recovered/Not Resolved]
  - Haemorrhoids [Unknown]
